FAERS Safety Report 21700905 (Version 5)
Quarter: 2023Q2

REPORT INFORMATION
  Report Type: Report from Study
  Country: CH (occurrence: CH)
  Receive Date: 20221208
  Receipt Date: 20230605
  Transmission Date: 20230722
  Serious: Yes (Hospitalization)
  Sender: FDA-Public Use
  Company Number: CH-ABBVIE-4227911

PATIENT
  Age: 84 Year
  Sex: Female
  Weight: 59 kg

DRUGS (23)
  1. VENETOCLAX [Suspect]
     Active Substance: VENETOCLAX
     Indication: Acute myeloid leukaemia
     Route: 048
     Dates: start: 20221227, end: 20221227
  2. VENETOCLAX [Suspect]
     Active Substance: VENETOCLAX
     Indication: Acute myeloid leukaemia
     Route: 048
     Dates: start: 20221222, end: 20221222
  3. VENETOCLAX [Suspect]
     Active Substance: VENETOCLAX
     Indication: Acute myeloid leukaemia
     Route: 048
     Dates: start: 20221223, end: 20221223
  4. VENETOCLAX [Suspect]
     Active Substance: VENETOCLAX
     Indication: Acute myeloid leukaemia
     Route: 048
     Dates: start: 20221116, end: 20221116
  5. VENETOCLAX [Suspect]
     Active Substance: VENETOCLAX
     Indication: Acute myeloid leukaemia
     Route: 048
     Dates: start: 20221221, end: 20221221
  6. VENETOCLAX [Suspect]
     Active Substance: VENETOCLAX
     Indication: Acute myeloid leukaemia
     Route: 048
     Dates: start: 20230213, end: 20230217
  7. VENETOCLAX [Suspect]
     Active Substance: VENETOCLAX
     Indication: Acute myeloid leukaemia
     Route: 048
     Dates: start: 20230103, end: 20230103
  8. VENETOCLAX [Suspect]
     Active Substance: VENETOCLAX
     Indication: Acute myeloid leukaemia
     Dates: start: 20230403
  9. Metoclopramidi hydrochloridum monohydricum (Metoclopramid) [Concomitant]
     Indication: Product used for unknown indication
     Dosage: FREQUENCY TEXT: DAILY, IF NEEDED
     Dates: start: 20221114
  10. Bisoprololi fumaras (Bilol) [Concomitant]
     Indication: Product used for unknown indication
     Route: 048
  11. Allopurinolum ( Allopurinol) [Concomitant]
     Indication: Product used for unknown indication
     Dosage: FREQUENCY TEXT: DAILY, IF NEEDED
     Dates: start: 20221114
  12. Amoxicillinum trihydricum, Acidum clavulanicum (Co-Amoxicillin) [Concomitant]
     Indication: Product used for unknown indication
     Route: 048
     Dates: start: 20221116, end: 20221117
  13. Amoxicillinum trihydricum, Acidum clavulanicum (Co-Amoxicillin) [Concomitant]
     Indication: Product used for unknown indication
     Route: 048
     Dates: start: 20221105, end: 20221114
  14. Rosuvastatin as Rosuvastatin-Calcium (Crestor) [Concomitant]
     Indication: Product used for unknown indication
     Route: 048
  15. Lisinoprilum ut Lisinoprilum dihydricum (Zestril) [Concomitant]
     Indication: Product used for unknown indication
     Route: 048
  16. AZACITIDINE [Suspect]
     Active Substance: AZACITIDINE
     Indication: Acute myeloid leukaemia
     Route: 065
     Dates: start: 20221114, end: 20221117
  17. AZACITIDINE [Suspect]
     Active Substance: AZACITIDINE
     Indication: Acute myeloid leukaemia
     Route: 065
     Dates: start: 20230213, end: 20230217
  18. AZACITIDINE [Suspect]
     Active Substance: AZACITIDINE
     Indication: Acute myeloid leukaemia
     Route: 065
     Dates: start: 20230403
  19. AZACITIDINE [Suspect]
     Active Substance: AZACITIDINE
     Indication: Acute myeloid leukaemia
     Route: 065
     Dates: start: 20221219, end: 20221223
  20. Vancomycinum, ut Vancomycini hydrochloridum (Vancomycin) [Concomitant]
     Indication: Product used for unknown indication
     Route: 042
     Dates: start: 20221121, end: 20221124
  21. Pantoprazol as Pantoprazol-Natrium-Sesquihydrat (Pantozole) [Concomitant]
     Indication: Product used for unknown indication
     Route: 048
  22. Cefepimum ut Cefepimi dihydrochloridum monohydricum (Cefepim) [Concomitant]
     Indication: Product used for unknown indication
     Route: 042
     Dates: start: 20221124, end: 20221201
  23. Ondansetronum (ut Ondansetroni HCl dihydricum) (Ondansetron) [Concomitant]
     Indication: Product used for unknown indication
     Dosage: FREQUENCY TEXT: DAILY, IF NEEDED
     Dates: start: 20221114

REACTIONS (2)
  - Infection [Recovering/Resolving]
  - Diarrhoea [Recovered/Resolved]

NARRATIVE: CASE EVENT DATE: 20221116
